FAERS Safety Report 10234977 (Version 1)
Quarter: 2014Q2

REPORT INFORMATION
  Report Type: Spontaneous
  Country: US (occurrence: None)
  Receive Date: 20140521
  Receipt Date: 20140521
  Transmission Date: 20141212
  Serious: Yes (Hospitalization)
  Sender: FDA-Public Use
  Company Number: 1000066598

PATIENT
  Age: 49 Year
  Sex: Female

DRUGS (5)
  1. FETZIMA [Suspect]
     Indication: DEPRESSION
     Route: 048
     Dates: start: 20140113, end: 20140114
  2. FETZIMA [Suspect]
     Indication: DEPRESSION
     Route: 048
     Dates: start: 20140227, end: 201404
  3. ABILIFY (ARIPIPRAZOLE) [Concomitant]
  4. TRAZODONE (TRAZODONE) (50 MILLIGRAM, TABLETS) (TRAZODONE) [Concomitant]
  5. SERAX (OXAZEPAM) (OXAZEPAM) [Concomitant]

REACTIONS (2)
  - Convulsion [None]
  - Drug ineffective [None]
